FAERS Safety Report 16929290 (Version 1)
Quarter: 2019Q4

REPORT INFORMATION
  Report Type: Spontaneous
  Country: DK (occurrence: DK)
  Receive Date: 20191017
  Receipt Date: 20191017
  Transmission Date: 20200122
  Serious: Yes (Hospitalization)
  Sender: FDA-Public Use
  Company Number: DK-ACCORD-158013

PATIENT
  Age: 64 Year
  Sex: Female

DRUGS (5)
  1. NAVELBINE [Interacting]
     Active Substance: VINORELBINE TARTRATE
     Indication: NON-SMALL CELL LUNG CANCER
     Dosage: STRENGTH: 20 MG, 30 MG AND 80 MG, DOSE: 120 MG DAY 1 (SEP 3) AND 150 MG DAY 8 (SEP 10)
     Route: 048
     Dates: start: 20190903
  2. CARBOPLATIN ACCORD [Suspect]
     Active Substance: CARBOPLATIN
     Indication: NON-SMALL CELL LUNG CANCER
     Dosage: STRENGTH: 10 MG/ML
     Route: 042
     Dates: start: 20190903
  3. GABAPENTIN. [Concomitant]
     Active Substance: GABAPENTIN
     Indication: NEURALGIA
     Dosage: STRENGTH: 600 MG
     Route: 048
     Dates: start: 20170419
  4. AKYNZEO [Interacting]
     Active Substance: NETUPITANT\PALONOSETRON HYDROCHLORIDE
     Indication: PROPHYLAXIS OF NAUSEA AND VOMITING
     Dosage: STRENGTH: 300 MG / 0.5 MG, DOSE: 1 CAPSULE 1 HOUR BEFORE CARBOPLATIN AND NAVELBINE TREATMENT
     Route: 048
     Dates: start: 20190903
  5. FUROSEMIDE ORIFARM [Concomitant]
     Indication: HYPERTENSION
     Dosage: STRENGTH: 40 MG
     Route: 048
     Dates: start: 20181030

REACTIONS (6)
  - Colitis [Not Recovered/Not Resolved]
  - Mechanical ileus [Not Recovered/Not Resolved]
  - Neutropenia [Recovered/Resolved]
  - Stomatitis [Unknown]
  - Neutropenic colitis [Unknown]
  - Abdominal pain [Unknown]

NARRATIVE: CASE EVENT DATE: 201909
